FAERS Safety Report 9532296 (Version 3)
Quarter: 2014Q1

REPORT INFORMATION
  Report Type: Report from Study
  Country: US (occurrence: US)
  Receive Date: 20130918
  Receipt Date: 20140210
  Transmission Date: 20141002
  Serious: Yes (Life-Threatening, Other)
  Sender: FDA-Public Use
  Company Number: PHEH2013US019490

PATIENT
  Sex: Male
  Weight: 122.45 kg

DRUGS (10)
  1. TASIGNA [Suspect]
     Indication: CHRONIC MYELOID LEUKAEMIA
     Dosage: 300 MG, BID
     Route: 048
     Dates: start: 20130719
  2. TYLENOL [Concomitant]
     Dosage: UNK
  3. AP CALCIUM+VIT D [Concomitant]
  4. MULTI-VIT [Concomitant]
  5. SIMVASTATIN [Concomitant]
     Dosage: UNK
  6. METFORMIN HCL [Concomitant]
     Dosage: UNK
  7. LISINOPRIL [Concomitant]
     Dosage: UNK
  8. METOPROLOL SUCCINATE [Concomitant]
     Dosage: UNK
  9. HYDROXYUREA [Concomitant]
     Dosage: UNK
  10. MAGNESIUM [Concomitant]

REACTIONS (15)
  - Myocardial infarction [Unknown]
  - Emphysema [Unknown]
  - Chronic obstructive pulmonary disease [Unknown]
  - Weight decreased [Unknown]
  - Local swelling [Unknown]
  - Retching [Unknown]
  - Swelling [Unknown]
  - Diarrhoea [Unknown]
  - Muscle spasms [Unknown]
  - Hyperhidrosis [Unknown]
  - Asthenia [Unknown]
  - Fatigue [Unknown]
  - Night sweats [Unknown]
  - Hot flush [Unknown]
  - Cough [Unknown]
